FAERS Safety Report 9370084 (Version 2)
Quarter: 2013Q3

REPORT INFORMATION
  Report Type: Report from Study
  Country: CA (occurrence: CA)
  Receive Date: 20130626
  Receipt Date: 20130724
  Transmission Date: 20140515
  Serious: Yes (Death, Other)
  Sender: FDA-Public Use
  Company Number: CA-CELGENEUS-028-50794-13063331

PATIENT
  Sex: Female

DRUGS (1)
  1. VIDAZA [Suspect]
     Indication: MYELODYSPLASTIC SYNDROME
     Route: 065
     Dates: start: 20120805, end: 20120905

REACTIONS (2)
  - Myelodysplastic syndrome [Fatal]
  - Pancytopenia [Unknown]
